FAERS Safety Report 8839377 (Version 1)
Quarter: 2012Q4

REPORT INFORMATION
  Report Type: Spontaneous
  Country: US (occurrence: None)
  Receive Date: 20121012
  Receipt Date: 20121012
  Transmission Date: 20130627
  Serious: No
  Sender: FDA-Public Use
  Company Number: None

PATIENT
  Sex: Female

DRUGS (2)
  1. ADVAIR [Suspect]
     Indication: COPD
     Dosage: Other
     Route: 050
  2. SPIRIVA [Suspect]
     Indication: COPD
     Dosage: Other
     Route: 050

REACTIONS (4)
  - Malaise [None]
  - Tremor [None]
  - Urine flow decreased [None]
  - Parkinson^s disease [None]
